FAERS Safety Report 16059852 (Version 1)
Quarter: 2019Q2

REPORT INFORMATION
  Report Type: Spontaneous
  Country: US (occurrence: US)
  Receive Date: 20190311
  Receipt Date: 20190311
  Transmission Date: 20190711
  Serious: Yes (Disabling)
  Sender: FDA-Public Use
  Company Number: None

PATIENT
  Age: 61 Year
  Sex: Female
  Weight: 63 kg

DRUGS (13)
  1. AIMOVIG [Suspect]
     Active Substance: ERENUMAB-AOOE
     Indication: MIGRAINE
     Dosage: ?          OTHER FREQUENCY:MONTHLY;?
     Route: 030
     Dates: start: 20180906, end: 20190220
  2. LEVETIRACETAM. [Concomitant]
     Active Substance: LEVETIRACETAM
  3. FAMOTIDINE. [Concomitant]
     Active Substance: FAMOTIDINE
  4. ASPIRIN. [Concomitant]
     Active Substance: ASPIRIN
  5. PROPAFENPENONE CHL [Concomitant]
  6. CALCIUM [Concomitant]
     Active Substance: CALCIUM
  7. ESTRADIOL. [Concomitant]
     Active Substance: ESTRADIOL
  8. SUMATRIPTAN. [Concomitant]
     Active Substance: SUMATRIPTAN
  9. ALEVE [Concomitant]
     Active Substance: NAPROXEN SODIUM
  10. BRISOPROLOL FUMARATE [Concomitant]
  11. NASONEX [Concomitant]
     Active Substance: MOMETASONE FUROATE
  12. MULTIVITAMIN [Concomitant]
     Active Substance: VITAMINS
  13. SUPHEDRINE PE [Concomitant]
     Active Substance: ACETAMINOPHEN\CHLORPHENIRAMINE MALEATE\DIPHENHYDRAMINE HYDROCHLORIDE\PHENYLEPHRINE HYDROCHLORIDE

REACTIONS (10)
  - Dyspnoea [None]
  - Sinusitis [None]
  - Fatigue [None]
  - Chest pain [None]
  - Muscular weakness [None]
  - Pulmonary congestion [None]
  - Dizziness [None]
  - Tinnitus [None]
  - Feeling abnormal [None]
  - Upper respiratory tract infection [None]

NARRATIVE: CASE EVENT DATE: 20180928
